FAERS Safety Report 7111962-6 (Version None)
Quarter: 2010Q4

REPORT INFORMATION
  Report Type: 
  Country: None (occurrence: None)
  Receive Date: 20101119
  Receipt Date: 20101109
  Transmission Date: 20110411
  Serious: Yes (Other)
  Sender: FDA-Public Use
  Company Number: JP-JNJFOC-20101105215

PATIENT
  Sex: Female

DRUGS (3)
  1. TYLENOL (CAPLET) [Suspect]
     Route: 048
  2. TYLENOL (CAPLET) [Suspect]
     Indication: MENOPAUSAL SYMPTOMS
     Route: 048
  3. AMINOSALICYLIC ACID BUFFERED TAB [Concomitant]
     Indication: MENOPAUSAL SYMPTOMS
     Route: 065

REACTIONS (3)
  - BURNING SENSATION [None]
  - DYSARTHRIA [None]
  - HEAD DISCOMFORT [None]
